FAERS Safety Report 23183017 (Version 1)
Quarter: 2023Q4

REPORT INFORMATION
  Report Type: Spontaneous
  Country: US (occurrence: US)
  Receive Date: 20231114
  Receipt Date: 20231114
  Transmission Date: 20240110
  Serious: No
  Sender: FDA-Public Use
  Company Number: US-SA-SAC20231103000363

PATIENT
  Age: 7 Year
  Sex: Male

DRUGS (1)
  1. DUPIXENT [Suspect]
     Active Substance: DUPILUMAB
     Indication: Dermatitis atopic
     Dosage: 300MG, QM
     Route: 058

REACTIONS (4)
  - Conjunctivitis [Recovered/Resolved]
  - Lacrimation increased [Recovered/Resolved]
  - Dry skin [Recovering/Resolving]
  - Therapeutic response decreased [Recovering/Resolving]
